FAERS Safety Report 6785938-2 (Version None)
Quarter: 2010Q2

REPORT INFORMATION
  Report Type: 
  Country: None (occurrence: None)
  Receive Date: 20100623
  Receipt Date: 20100426
  Transmission Date: 20101027
  Serious: Yes (Other)
  Sender: FDA-Public Use
  Company Number: TN-BRISTOL-MYERS SQUIBB COMPANY-15073349

PATIENT
  Age: 46 Year
  Sex: Male

DRUGS (4)
  1. METFORMIN HCL [Suspect]
     Indication: DIABETES MELLITUS
     Dosage: 1 DF=1 TABLETS;850MG TABS;21MAR2000 RESUMED THE DRUG
     Route: 048
     Dates: start: 20000125
  2. GLYBURIDE [Concomitant]
     Dosage: 1DF=1 TABLET;DAONIL 5;DRUG WITHDRAWN
     Route: 048
     Dates: start: 20000125
  3. AMOXICILLIN TRIHYDRATE [Concomitant]
     Indication: PHARYNGITIS
     Dosage: PENAMOX 500; DRUG WITHDRAWN
     Route: 048
     Dates: start: 20000208
  4. NIFLURIL [Concomitant]
     Indication: PHARYNGITIS
     Dosage: DRUG WITHDRAWN
     Route: 048
     Dates: start: 20000208

REACTIONS (1)
  - PHOTOSENSITIVITY REACTION [None]
